FAERS Safety Report 23835415 (Version 1)
Quarter: 2024Q2

REPORT INFORMATION
  Report Type: Spontaneous
  Country: FR (occurrence: FR)
  Receive Date: 20240509
  Receipt Date: 20240509
  Transmission Date: 20240716
  Serious: Yes (Life-Threatening, Hospitalization)
  Sender: FDA-Public Use
  Company Number: FR-SUN PHARMACEUTICAL INDUSTRIES LTD-2024RR-445153

PATIENT
  Age: 25 Year
  Sex: Male

DRUGS (4)
  1. PAROXETINE [Suspect]
     Active Substance: PAROXETINE
     Indication: Poisoning deliberate
     Dosage: UNK
     Route: 048
     Dates: start: 202308
  2. CYAMEMAZINE [Suspect]
     Active Substance: CYAMEMAZINE
     Indication: Poisoning deliberate
     Dosage: UNK
     Route: 048
     Dates: start: 202308
  3. OXAZEPAM [Suspect]
     Active Substance: OXAZEPAM
     Indication: Poisoning deliberate
     Dosage: UNK
     Route: 048
     Dates: start: 202308
  4. TRAMADOL [Suspect]
     Active Substance: TRAMADOL\TRAMADOL HYDROCHLORIDE
     Indication: Poisoning deliberate
     Dosage: UNK
     Route: 048
     Dates: start: 202308

REACTIONS (1)
  - Poisoning deliberate [Recovered/Resolved]

NARRATIVE: CASE EVENT DATE: 20230801
